FAERS Safety Report 5462731-4 (Version None)
Quarter: 2007Q3

REPORT INFORMATION
  Report Type: 
  Country: None (occurrence: None)
  Receive Date: 20070920
  Receipt Date: 20070328
  Transmission Date: 20080115
  Serious: No
  Sender: FDA-Public Use
  Company Number: A0641417A

PATIENT

DRUGS (1)
  1. ABREVA [Suspect]

REACTIONS (3)
  - APPLICATION SITE DRYNESS [None]
  - APPLICATION SITE INDURATION [None]
  - APPLICATION SITE SCAB [None]
